FAERS Safety Report 6524849-4 (Version None)
Quarter: 2010Q1

REPORT INFORMATION
  Report Type: 
  Country: None (occurrence: None)
  Receive Date: 20100104
  Receipt Date: 20091223
  Transmission Date: 20100710
  Serious: Yes (Hospitalization)
  Sender: FDA-Public Use
  Company Number: PHHY2009IT58413

PATIENT
  Sex: Female

DRUGS (6)
  1. ZOMETA [Suspect]
     Indication: METASTASES TO BONE
     Dosage: UNK
     Dates: start: 20050708, end: 20070901
  2. THALIDOMIDE [Concomitant]
  3. ALKERAN [Concomitant]
  4. SOLDESAM [Concomitant]
  5. ENDOXAN [Concomitant]
  6. FRAXIPARINA [Concomitant]

REACTIONS (2)
  - JAW FRACTURE [None]
  - OSTEONECROSIS [None]
